FAERS Safety Report 6408177-3 (Version None)
Quarter: 2009Q4

REPORT INFORMATION
  Report Type: 
  Country: None (occurrence: None)
  Receive Date: 20091019
  Receipt Date: 20091005
  Transmission Date: 20100525
  Serious: Yes (Death)
  Sender: FDA-Public Use
  Company Number: 2009AC000122

PATIENT
  Sex: Female

DRUGS (8)
  1. DIGOXIN [Suspect]
     Dosage: 0.125 MG;QD;PO
     Route: 048
  2. ATENOLOL [Concomitant]
  3. IBUPROFEN [Concomitant]
  4. COUMADIN [Concomitant]
  5. CARDIZEM [Concomitant]
  6. LOPRESSOR [Concomitant]
  7. AMIODARONE [Concomitant]
  8. AVALIDE [Concomitant]

REACTIONS (11)
  - ATRIAL FIBRILLATION [None]
  - DEHYDRATION [None]
  - ECONOMIC PROBLEM [None]
  - HEART RATE IRREGULAR [None]
  - HYPERKALAEMIA [None]
  - HYPERTENSION [None]
  - HYPOTENSION [None]
  - INJURY [None]
  - METABOLIC ACIDOSIS [None]
  - RENAL FAILURE ACUTE [None]
  - URINARY TRACT INFECTION [None]
